FAERS Safety Report 7588982-0 (Version None)
Quarter: 2011Q3

REPORT INFORMATION
  Report Type: 
  Country: None (occurrence: None)
  Receive Date: 20110705
  Receipt Date: 20110620
  Transmission Date: 20111222
  Serious: Yes (Hospitalization)
  Sender: FDA-Public Use
  Company Number: PHHY2011TR55462

PATIENT
  Age: 10 Year
  Sex: Male

DRUGS (9)
  1. PREDNISOLONE [Suspect]
     Dosage: UNK UKN, UNK
  2. RITUXIMAB [Concomitant]
     Dosage: 375 MG/M2, ONE SINGLE DOSE (TWO COURSES)
     Route: 042
  3. CYCLOPHOSPHAMIDE [Concomitant]
     Dosage: UNK UKN, UNK
  4. ADRIAMYCIN PFS [Concomitant]
     Dosage: UNK UL, UNK
  5. CYCLOSPORINE [Suspect]
     Indication: RENAL TRANSPLANT
     Dosage: UNK UKN, UNK
  6. METHYLPREDNISOLONE [Concomitant]
     Dosage: UNK UKN, UNK
  7. MYCOPHENOLIC ACID [Suspect]
     Indication: RENAL TRANSPLANT
     Dosage: 600 MG/M2/DAY
  8. TACROLIMUS [Suspect]
     Indication: RENAL TRANSPLANT
     Dosage: 0.15 MG/KG/DAY
  9. VALACICLOVIR [Concomitant]
     Dosage: UNK UKN, UNK

REACTIONS (10)
  - KIDNEY TRANSPLANT REJECTION [None]
  - DECREASED APPETITE [None]
  - HEPATOSPLENOMEGALY [None]
  - PYREXIA [None]
  - EPSTEIN-BARR VIRUS ASSOCIATED LYMPHOPROLIFERATIVE DISORDER [None]
  - OROPHARYNGEAL PAIN [None]
  - HEPATIC NEOPLASM [None]
  - HILAR LYMPHADENOPATHY [None]
  - MONOCYTOSIS [None]
  - WEIGHT DECREASED [None]
